FAERS Safety Report 5147913-3 (Version None)
Quarter: 2006Q4

REPORT INFORMATION
  Report Type: 
  Country: None (occurrence: None)
  Receive Date: 20061106
  Receipt Date: 20051024
  Transmission Date: 20070319
  Serious: Yes (Death, Other)
  Sender: FDA-Public Use
  Company Number: 2006129501

PATIENT
  Age: 3 Year
  Sex: Male

DRUGS (1)
  1. NIFEDIPINE [Suspect]
     Dosage: 120 MG (60 MG), UNKNOWN

REACTIONS (2)
  - ACCIDENTAL EXPOSURE [None]
  - WRONG DRUG ADMINISTERED [None]
